FAERS Safety Report 7220998-6 (Version None)
Quarter: 2011Q1

REPORT INFORMATION
  Report Type: 
  Country: None (occurrence: None)
  Receive Date: 20110112
  Receipt Date: 20110106
  Transmission Date: 20110831
  Serious: Yes (Hospitalization, Other)
  Sender: FDA-Public Use
  Company Number: FR-BRISTOL-MYERS SQUIBB COMPANY-15477599

PATIENT
  Age: 78 Year
  Sex: Male

DRUGS (6)
  1. ASPEGIC 1000 [Suspect]
     Route: 048
     Dates: start: 20101104, end: 20101207
  2. MELPHALAN [Suspect]
     Indication: MULTIPLE MYELOMA
     Dates: start: 20101101
  3. COUMADIN [Suspect]
     Dates: start: 20101104, end: 20101129
  4. PREDNISONE [Concomitant]
     Indication: MULTIPLE MYELOMA
     Dates: start: 20101101
  5. THALIDOMIDE [Suspect]
     Indication: MULTIPLE MYELOMA
     Dates: start: 20101101
  6. PLAVIX [Suspect]

REACTIONS (2)
  - RENAL FAILURE [None]
  - EPISTAXIS [None]
